FAERS Safety Report 9293453 (Version 1)
Quarter: 2013Q2

REPORT INFORMATION
  Report Type: Report from Study
  Country: US (occurrence: US)
  Receive Date: 20130516
  Receipt Date: 20130516
  Transmission Date: 20140414
  Serious: Yes (Hospitalization)
  Sender: FDA-Public Use
  Company Number: US-MYLANLABS-2013S1008667

PATIENT
  Age: 70 Year
  Sex: Male

DRUGS (12)
  1. GLIPIZIDE [Suspect]
     Indication: TYPE 2 DIABETES MELLITUS
     Route: 048
     Dates: start: 20100901, end: 20120419
  2. GLIPIZIDE [Suspect]
     Indication: TYPE 2 DIABETES MELLITUS
     Route: 048
     Dates: start: 20120501, end: 20120524
  3. METFORMIN [Suspect]
     Indication: TYPE 2 DIABETES MELLITUS
     Route: 048
     Dates: start: 20100805, end: 20120410
  4. METFORMIN [Suspect]
     Indication: TYPE 2 DIABETES MELLITUS
     Route: 048
     Dates: start: 20120501
  5. BENICAR [Concomitant]
     Route: 048
     Dates: start: 2006
  6. CIPRO [Concomitant]
     Route: 048
     Dates: start: 20120104
  7. FENOFIBRATE [Concomitant]
     Route: 048
     Dates: start: 2007
  8. FLEXERIL [Concomitant]
     Route: 048
     Dates: start: 2010
  9. FLOMAX /00889901/ [Concomitant]
     Route: 048
     Dates: start: 20110420
  10. OMEPRAZOLE [Concomitant]
     Route: 048
     Dates: start: 2006
  11. PRAVASTATIN [Concomitant]
     Route: 048
     Dates: start: 2006
  12. ZETIA [Concomitant]
     Route: 048
     Dates: start: 2003

REACTIONS (1)
  - Pancreatitis acute [Recovered/Resolved]
